FAERS Safety Report 8966776 (Version 1)
Quarter: 2012Q4

REPORT INFORMATION
  Report Type: 
  Country: US (occurrence: US)
  Receive Date: 20121217
  Receipt Date: 20121217
  Transmission Date: 20130627
  Serious: Yes (Hospitalization)
  Sender: FDA-Public Use
  Company Number: US-JNJFOC-20121204027

PATIENT
  Age: 67 Year
  Sex: Female

DRUGS (2)
  1. ACETAMINOPHEN [Suspect]
     Route: 048
  2. ACETAMINOPHEN [Suspect]
     Indication: POSTOPERATIVE CARE
     Dosage: 1000mg every 6 hours
     Route: 048

REACTIONS (2)
  - Metabolic acidosis [Recovered/Resolved]
  - Confusional state [Recovered/Resolved]
